FAERS Safety Report 7764376-X (Version None)
Quarter: 2011Q3

REPORT INFORMATION
  Report Type: 
  Country: None (occurrence: None)
  Receive Date: 20110921
  Receipt Date: 20110908
  Transmission Date: 20111222
  Serious: Yes (Hospitalization, Disabling)
  Sender: FDA-Public Use
  Company Number: FI-ELI_LILLY_AND_COMPANY-FI201101002590

PATIENT
  Sex: Female

DRUGS (7)
  1. FORTEO [Suspect]
     Indication: OSTEOPOROSIS
     Dosage: 20 UG, DAILY (1/D)
     Route: 058
     Dates: start: 20100917
  2. FORTEO [Suspect]
     Dosage: 20 UG, DAILY (1/D)
     Route: 058
     Dates: start: 20101208, end: 20110105
  3. CALCIUM CARBONATE [Concomitant]
     Indication: MINERAL SUPPLEMENTATION
  4. ACETAMINOPHEN [Concomitant]
     Indication: PAIN
  5. FORTEO [Suspect]
     Dosage: 20 UG, DAILY (1/D)
     Route: 058
     Dates: start: 20110401
  6. THYROXIN [Concomitant]
     Indication: HYPOTHYROIDISM
  7. MADOPAR [Concomitant]
     Indication: PARKINSON'S DISEASE

REACTIONS (2)
  - PARKINSON'S DISEASE [None]
  - MUSCULOSKELETAL STIFFNESS [None]
